FAERS Safety Report 9023380 (Version 2)
Quarter: 2013Q2

REPORT INFORMATION
  Report Type: Report from Study
  Country: SE (occurrence: SE)
  Receive Date: 20130121
  Receipt Date: 20130409
  Transmission Date: 20140414
  Serious: Yes (Hospitalization)
  Sender: FDA-Public Use
  Company Number: SE-ABBOTT-13P-150-1035991-00

PATIENT
  Age: 75 Year
  Sex: Male

DRUGS (10)
  1. ZEMPLAR [Suspect]
     Indication: RENAL FAILURE CHRONIC
     Route: 048
     Dates: start: 20110128, end: 20110510
  2. ALFADIL [Concomitant]
     Indication: HYPERTENSION
     Dates: start: 20110418
  3. AMLODIPIN [Concomitant]
     Indication: HYPERTENSION
     Dates: start: 20110415
  4. CALCITUGG [Concomitant]
     Indication: HYPERPHOSPHATAEMIA
     Dates: start: 20110415
  5. FUROSEMIDE [Concomitant]
     Indication: OEDEMA
     Dates: start: 20110120
  6. RESONIUM [Concomitant]
     Indication: HYPERKALAEMIA
     Dates: start: 20090430
  7. TROMBYL [Concomitant]
     Indication: THROMBOSIS PROPHYLAXIS
     Dates: start: 20110430
  8. ZYLORIC [Concomitant]
     Indication: GOUT
     Dates: start: 20090424
  9. INSULIN [Concomitant]
     Indication: DIABETES MELLITUS
     Dosage: AS PRESCRIBED
     Dates: start: 200910
  10. NOVORAPID [Concomitant]
     Indication: DIABETES MELLITUS
     Dosage: AS PRESCRIBED
     Dates: start: 200910

REACTIONS (3)
  - Glomerulonephritis rapidly progressive [Recovered/Resolved]
  - Red cell distribution width abnormal [Unknown]
  - Red cell distribution width abnormal [Unknown]
